FAERS Safety Report 10574968 (Version 2)
Quarter: 2015Q2

REPORT INFORMATION
  Report Type: Spontaneous
  Country: MY (occurrence: MY)
  Receive Date: 20141111
  Receipt Date: 20150401
  Transmission Date: 20150821
  Serious: Yes (Death, Hospitalization, Other)
  Sender: FDA-Public Use
  Company Number: MY-MERCK-1411MYS002028

PATIENT
  Age: 66 Year
  Sex: Female

DRUGS (3)
  1. AMPHOTERICIN B. [Concomitant]
     Active Substance: AMPHOTERICIN B
     Dosage: UNK
  2. CANCIDAS [Suspect]
     Active Substance: CASPOFUNGIN ACETATE
     Indication: CANDIDA INFECTION
     Dosage: 70 MG LOADING DOSE, UNK
     Route: 042
     Dates: start: 20141002, end: 20141007
  3. CANCIDAS [Suspect]
     Active Substance: CASPOFUNGIN ACETATE
     Indication: CANDIDA INFECTION
     Dosage: 50 MG, UNK
     Route: 042
     Dates: start: 20141002, end: 20141007

REACTIONS (11)
  - Leg amputation [Unknown]
  - Cough [Unknown]
  - Klebsiella test positive [Unknown]
  - Herpes zoster [Unknown]
  - Mouth ulceration [Unknown]
  - Mechanical ventilation [Unknown]
  - Mouth haemorrhage [Recovering/Resolving]
  - Mucosal haemorrhage [Recovering/Resolving]
  - Obstructive airways disorder [Unknown]
  - Septic shock [Fatal]
  - Tracheostomy [Unknown]

NARRATIVE: CASE EVENT DATE: 201410
